FAERS Safety Report 12725184 (Version 1)
Quarter: 2016Q3

REPORT INFORMATION
  Report Type: Spontaneous
  Country: US (occurrence: US)
  Receive Date: 20160908
  Receipt Date: 20160908
  Transmission Date: 20161109
  Serious: No
  Sender: FDA-Public Use
  Company Number: US-BAYER-2016-169049

PATIENT
  Age: 38 Year
  Sex: Female
  Weight: 81.65 kg

DRUGS (1)
  1. MIRENA [Suspect]
     Active Substance: LEVONORGESTREL
     Indication: CONTRACEPTION
     Dosage: 20 MCG/24HR, CONT
     Route: 015
     Dates: start: 20160314, end: 20160829

REACTIONS (1)
  - Device expulsion [None]

NARRATIVE: CASE EVENT DATE: 20160708
